FAERS Safety Report 17995418 (Version 1)
Quarter: 2020Q3

REPORT INFORMATION
  Report Type: Other
  Country: US (occurrence: US)
  Receive Date: 20200708
  Receipt Date: 20200708
  Transmission Date: 20201103
  Serious: Yes (Hospitalization)
  Sender: FDA-Public Use
  Company Number: US-B.BRAUN MEDICAL INC.-2087132

PATIENT
  Age: 76 Year
  Sex: Female

DRUGS (6)
  1. GLUCAGON. [Concomitant]
     Active Substance: GLUCAGON
  2. NOREPINEPHRINE. [Concomitant]
     Active Substance: NOREPINEPHRINE
  3. NUTRILIPID I.V. FAT EMULSION [Suspect]
     Active Substance: SOYBEAN OIL
     Indication: INTENTIONAL OVERDOSE
     Route: 042
  4. DOPAMINE [Concomitant]
     Active Substance: DOPAMINE HYDROCHLORIDE
  5. INSULIN HIGH DOSE [Concomitant]
  6. EPINEPHRINE. [Concomitant]
     Active Substance: EPINEPHRINE

REACTIONS (1)
  - Pulmonary embolism [Recovered/Resolved]
